FAERS Safety Report 26080305 (Version 1)
Quarter: 2025Q4

REPORT INFORMATION
  Report Type: Report from Study
  Country: CN (occurrence: CN)
  Receive Date: 20251124
  Receipt Date: 20251124
  Transmission Date: 20260117
  Serious: Yes (Hospitalization, Other)
  Sender: SANOFI AVENTIS
  Company Number: CN-SA-2025SA151654

PATIENT
  Age: 1 Year
  Sex: Female
  Weight: 11 kg

DRUGS (2)
  1. DUPILUMAB [Suspect]
     Active Substance: DUPILUMAB
     Indication: Dermatitis atopic
     Dosage: 200 MG, 1X
     Route: 058
     Dates: start: 20250428, end: 20250428
  2. DUPILUMAB [Suspect]
     Active Substance: DUPILUMAB
     Dosage: 200 MG, Q4W
     Route: 058
     Dates: start: 2025, end: 20250928

REACTIONS (9)
  - Pneumonia [Recovering/Resolving]
  - Cough [Recovering/Resolving]
  - Dyspnoea [Recovering/Resolving]
  - Productive cough [Recovering/Resolving]
  - Epstein-Barr virus infection [Recovered/Resolved]
  - Lymphadenopathy [Recovered/Resolved]
  - Splenomegaly [Recovered/Resolved]
  - Mental disorder [Recovered/Resolved]
  - Eyelid ptosis [Recovered/Resolved]

NARRATIVE: CASE EVENT DATE: 20250524
